FAERS Safety Report 4836523-0 (Version None)
Quarter: 2005Q4

REPORT INFORMATION
  Report Type: 
  Country: None (occurrence: None)
  Receive Date: 20051118
  Receipt Date: 20051109
  Transmission Date: 20060501
  Serious: Yes (Death, Hospitalization)
  Sender: FDA-Public Use
  Company Number: 2005154213

PATIENT
  Age: 67 Year
  Sex: Male

DRUGS (8)
  1. AMLODIPINE [Suspect]
     Indication: ILL-DEFINED DISORDER
     Dosage: 20 MG (20 MG, 1 IN 1 D)
  2. ATORVASTATIN CALCIUM [Suspect]
     Indication: ILL-DEFINED DISORDER
     Dosage: 10 MG (10 MG, 1 IN 1 D)
  3. DOXAZOSIN (DOXAZOSIN) [Suspect]
     Indication: ILL-DEFINED DISORDER
     Dosage: 8 MG (4 MG, 2 IN 1 D)
  4. METOPROLOL (METOPROLOL) [Suspect]
     Indication: ILL-DEFINED DISORDER
     Dosage: 100 MG (50 MG, 2 IN 1 D)
  5. ASPIRIN [Concomitant]
  6. FUROSEMIDE [Concomitant]
  7. LEVOTHYROXINE SODIUM [Concomitant]
  8. MIXTARD HUMAN 70/30 [Concomitant]

REACTIONS (7)
  - BLOOD CREATININE INCREASED [None]
  - BLOOD UREA INCREASED [None]
  - BRONCHOPNEUMONIA [None]
  - GENERAL PHYSICAL HEALTH DETERIORATION [None]
  - INCORRECT DOSE ADMINISTERED [None]
  - LOWER RESPIRATORY TRACT INFECTION [None]
  - MULTI-ORGAN FAILURE [None]
